FAERS Safety Report 8842137 (Version 2)
Quarter: 2013Q2

REPORT INFORMATION
  Report Type: Report from Study
  Country: MX (occurrence: MX)
  Receive Date: 20121016
  Receipt Date: 20130510
  Transmission Date: 20140414
  Serious: Yes (Death)
  Sender: FDA-Public Use
  Company Number: PHHY2012MX091296

PATIENT
  Sex: Male

DRUGS (1)
  1. TEGRETOL [Suspect]
     Indication: EPILEPSY
     Dosage: 2 DF, DAILY
     Route: 048
     Dates: start: 201103

REACTIONS (1)
  - Death [Fatal]
